FAERS Safety Report 26019546 (Version 2)
Quarter: 2025Q4

REPORT INFORMATION
  Report Type: Spontaneous
  Country: US (occurrence: US)
  Receive Date: 20251110
  Receipt Date: 20251123
  Transmission Date: 20260117
  Serious: No
  Sender: JOHNSON AND JOHNSON
  Company Number: US-JNJFOC-20251033458

PATIENT
  Age: 63 Year
  Sex: Male

DRUGS (1)
  1. TREMFYA [Suspect]
     Active Substance: GUSELKUMAB
     Indication: Colitis ulcerative
     Dosage: FORM OF STRENGTH: 200.00 MG / 2.00 ML
     Dates: start: 20251023

REACTIONS (2)
  - Liquid product physical issue [Unknown]
  - Incorrect dose administered by device [Unknown]
